FAERS Safety Report 5599316-5 (Version None)
Quarter: 2008Q1

REPORT INFORMATION
  Report Type: 
  Country: None (occurrence: None)
  Receive Date: 20080122
  Receipt Date: 20080108
  Transmission Date: 20080703
  Serious: Yes (Death, Hospitalization, Other)
  Sender: FDA-Public Use
  Company Number: IN-PFIZER INC-2008003448

PATIENT
  Age: 67 Year
  Sex: Male

DRUGS (10)
  1. FRAGMIN [Suspect]
     Indication: THROMBOSIS PROPHYLAXIS
     Route: 058
     Dates: start: 20071201, end: 20071222
  2. FRAGMIN [Suspect]
  3. AZTREONAM [Concomitant]
     Route: 042
  4. MOXIFLOXACIN HCL [Concomitant]
     Route: 042
  5. FLUCON [Concomitant]
     Route: 042
  6. SOLU-MEDROL [Concomitant]
     Route: 042
  7. METROGYL [Concomitant]
     Route: 042
  8. AMLODIPINE [Concomitant]
     Route: 048
  9. ACETAMINOPHEN [Concomitant]
     Route: 048
  10. UNICON [Concomitant]
     Route: 048

REACTIONS (5)
  - ACUTE MYOCARDIAL INFARCTION [None]
  - CHRONIC OBSTRUCTIVE PULMONARY DISEASE [None]
  - HAEMATURIA [None]
  - HYPERTENSION [None]
  - SEPSIS [None]
